FAERS Safety Report 6146930-4 (Version None)
Quarter: 2009Q2

REPORT INFORMATION
  Report Type: 
  Country: None (occurrence: None)
  Receive Date: 20090407
  Receipt Date: 20090401
  Transmission Date: 20091009
  Serious: No
  Sender: FDA-Public Use
  Company Number: US-B.I. PHARMACEUTICALS,INC./RIDGEFIELD-2009-BP-03255BP

PATIENT
  Age: 81 Year
  Sex: Female

DRUGS (6)
  1. COMBIVENT [Suspect]
     Indication: BRONCHITIS CHRONIC
  2. LEVOTHYROXINE SODIUM [Concomitant]
  3. PROAIR HFA AER [Concomitant]
  4. IPRATROPIUM BROMIDE [Concomitant]
  5. CENTRUM SILVER [Concomitant]
  6. CALTRATE [Concomitant]

REACTIONS (3)
  - ERYTHEMA [None]
  - RHINORRHOEA [None]
  - SKIN DISCOLOURATION [None]
